FAERS Safety Report 21692670 (Version 1)
Quarter: 2022Q4

REPORT INFORMATION
  Report Type: Report from Study
  Country: US (occurrence: US)
  Receive Date: 20221207
  Receipt Date: 20221207
  Transmission Date: 20230113
  Serious: Yes (Hospitalization)
  Sender: FDA-Public Use
  Company Number: US-JNJFOC-20221206017

PATIENT
  Age: 6 Month
  Sex: Male
  Weight: 6.356 kg

DRUGS (1)
  1. TRACLEER [Suspect]
     Active Substance: BOSENTAN
     Indication: Pulmonary arterial hypertension
     Dosage: GIVE ONE HALF TABLET (16 MG) TWICE A DAY, DISPERSE 1/2 TABLET IN 5 ML OF WATER IMMEDIATELY BEFORE AD
     Route: 048
     Dates: start: 20221104

REACTIONS (2)
  - Urinary tract infection [Unknown]
  - Off label use [Unknown]

NARRATIVE: CASE EVENT DATE: 20221104
